FAERS Safety Report 14294375 (Version 4)
Quarter: 2018Q3

REPORT INFORMATION
  Report Type: Report from Study
  Country: CA (occurrence: CA)
  Receive Date: 20171218
  Receipt Date: 20180828
  Transmission Date: 20181010
  Serious: Yes (Disabling, Other)
  Sender: FDA-Public Use
  Company Number: CA-AMGEN-CANSL2017152488

PATIENT
  Age: 78 Year
  Sex: Female
  Weight: 61.2 kg

DRUGS (6)
  1. KYPROLIS [Suspect]
     Active Substance: CARFILZOMIB
     Dosage: 45 MG, UNK CYCLE 5
     Route: 042
  2. KYPROLIS [Suspect]
     Active Substance: CARFILZOMIB
     Dosage: 45 MG, CYCLE 5
     Route: 042
     Dates: start: 2017
  3. KYPROLIS [Suspect]
     Active Substance: CARFILZOMIB
     Dosage: 45 MG, UNK CYCLE 5
     Route: 042
     Dates: start: 20170823, end: 2017
  4. KYPROLIS [Suspect]
     Active Substance: CARFILZOMIB
     Indication: PLASMA CELL MYELOMA
     Dosage: 45 MG, ON DAY 1, 2, 8, 9, 15 AND 16
     Route: 042
     Dates: start: 20170705, end: 2017
  5. KYPROLIS [Suspect]
     Active Substance: CARFILZOMIB
     Dosage: 45 MG, CYCLE 5
     Route: 042
     Dates: start: 2017, end: 2017
  6. KYPROLIS [Suspect]
     Active Substance: CARFILZOMIB
     Dosage: 45 MG, CYCLE 5 / DAY 1, 2, 8, 9, 15, 16/ Q CYCLE
     Route: 042
     Dates: start: 2017

REACTIONS (12)
  - Fatigue [Not Recovered/Not Resolved]
  - Neutropenia [Not Recovered/Not Resolved]
  - Contusion [Unknown]
  - Decreased appetite [Recovered/Resolved]
  - Skin papilloma [Recovering/Resolving]
  - Nasopharyngitis [Not Recovered/Not Resolved]
  - Dyspepsia [Recovered/Resolved]
  - Constipation [Recovered/Resolved]
  - Dry mouth [Not Recovered/Not Resolved]
  - Fall [Unknown]
  - Dyspnoea [Unknown]
  - Anaemia [Not Recovered/Not Resolved]

NARRATIVE: CASE EVENT DATE: 2017
